FAERS Safety Report 4989832-9 (Version None)
Quarter: 2006Q2

REPORT INFORMATION
  Report Type: 
  Country: None (occurrence: None)
  Receive Date: 20060501
  Receipt Date: 20060419
  Transmission Date: 20061013
  Serious: Yes (Other)
  Sender: FDA-Public Use
  Company Number: TOR 2006-0023

PATIENT
  Sex: Female

DRUGS (1)
  1. FARESTON [Suspect]
     Indication: BREAST CANCER
     Dosage: 40  MG ORAL
     Route: 048
     Dates: start: 20030401, end: 20060401

REACTIONS (1)
  - UTERINE LEIOMYOMA [None]
